FAERS Safety Report 4408428-0 (Version None)
Quarter: 2004Q3

REPORT INFORMATION
  Report Type: 
  Country: None (occurrence: None)
  Receive Date: 20040722
  Receipt Date: 20040709
  Transmission Date: 20050211
  Serious: Yes (Hospitalization)
  Sender: FDA-Public Use
  Company Number: 2004-BP-05544BP (0)

PATIENT
  Age: 74 Year
  Sex: Male

DRUGS (5)
  1. AGGRENOX [Suspect]
     Indication: CEREBROVASCULAR ACCIDENT PROPHYLAXIS
     Dosage: SEE TEXT (SEE TEXT, 25MG/200MG 1 CAPSULE BID), PO
     Route: 048
     Dates: start: 20040501
  2. AGGRENOX [Suspect]
     Indication: TRANSIENT ISCHAEMIC ATTACK
     Dosage: SEE TEXT (SEE TEXT, 25MG/200MG 1 CAPSULE BID), PO
     Route: 048
     Dates: start: 20040501
  3. NEURONTIN [Concomitant]
     Indication: PROPHYLAXIS
  4. NORVASC [Concomitant]
  5. FOLIC ACID [Concomitant]

REACTIONS (3)
  - ARTHRALGIA [None]
  - ARTHRITIS INFECTIVE [None]
  - JOINT SWELLING [None]
